FAERS Safety Report 9250914 (Version 1)
Quarter: 2013Q2

REPORT INFORMATION
  Report Type: Spontaneous
  Country: ES (occurrence: ES)
  Receive Date: 20130424
  Receipt Date: 20130424
  Transmission Date: 20140414
  Serious: Yes (Hospitalization)
  Sender: FDA-Public Use
  Company Number: PHHY2013ES039412

PATIENT
  Age: 21 Year
  Sex: Female

DRUGS (1)
  1. GILENYA [Suspect]
     Dosage: UNK
     Route: 048
     Dates: start: 20130419

REACTIONS (3)
  - Chest pain [Recovered/Resolved]
  - Dyspnoea [Recovered/Resolved]
  - Diarrhoea [Recovered/Resolved]
